FAERS Safety Report 16381139 (Version 1)
Quarter: 2019Q2

REPORT INFORMATION
  Report Type: Report from Study
  Country: None (occurrence: US)
  Receive Date: 20190602
  Receipt Date: 20190602
  Transmission Date: 20190711
  Serious: Yes (Hospitalization)
  Sender: FDA-Public Use
  Company Number: US-ABBVIE-19K-163-2803367-00

PATIENT
  Sex: Female

DRUGS (1)
  1. HUMIRA [Suspect]
     Active Substance: ADALIMUMAB
     Indication: CROHN^S DISEASE
     Dosage: CITRATE FREE (CF)
     Route: 058

REACTIONS (3)
  - Bronchitis [Recovered/Resolved]
  - Gastrointestinal inflammation [Recovering/Resolving]
  - Urinary tract infection [Recovering/Resolving]
